FAERS Safety Report 10501575 (Version 1)
Quarter: 2014Q4

REPORT INFORMATION
  Report Type: Spontaneous
  Country: US (occurrence: None)
  Receive Date: 20141006
  Receipt Date: 20141006
  Transmission Date: 20150528
  Serious: Yes (Disabling, Other)
  Sender: FDA-Public Use
  Company Number: None

PATIENT
  Age: 41 Year
  Sex: Female

DRUGS (2)
  1. CLONAZEPAM. [Suspect]
     Active Substance: CLONAZEPAM
     Indication: COMPLEX PARTIAL SEIZURES
     Dosage: 1 TABLET THREE TIMES DAILY TAKEN BY MOUTH
     Route: 048
  2. KEPPRA [Suspect]
     Active Substance: LEVETIRACETAM
     Indication: GENERALISED TONIC-CLONIC SEIZURE
     Route: 048

REACTIONS (7)
  - Tooth disorder [None]
  - Tooth fracture [None]
  - Tooth injury [None]
  - Fall [None]
  - Gingival bleeding [None]
  - Toothache [None]
  - Gingival pain [None]

NARRATIVE: CASE EVENT DATE: 20111125
